FAERS Safety Report 8791212 (Version 1)
Quarter: 2012Q4

REPORT INFORMATION
  Report Type: Spontaneous
  Country: US (occurrence: None)
  Receive Date: 20120913
  Receipt Date: 20120913
  Transmission Date: 20130627
  Serious: Yes (Hospitalization)
  Sender: FDA-Public Use
  Company Number: None

PATIENT
  Age: 60 Year
  Sex: Male
  Weight: 92.99 kg

DRUGS (2)
  1. CLONAZEPAM [Suspect]
     Indication: SCHIZOPHRENIA
     Dosage: 2 pills  2 x daily oral over about 6 mos.
     Route: 048
  2. CLONAZEPAM [Suspect]
     Indication: BIPOLAR DISORDER
     Dosage: 2 pills  2 x daily oral over about 6 mos.
     Route: 048

REACTIONS (5)
  - Dyspnoea [None]
  - Weight decreased [None]
  - Decreased appetite [None]
  - Speech disorder [None]
  - Gait disturbance [None]
